FAERS Safety Report 12875192 (Version 2)
Quarter: 2016Q4

REPORT INFORMATION
  Report Type: Spontaneous
  Country: US (occurrence: US)
  Receive Date: 20161024
  Receipt Date: 20161028
  Transmission Date: 20170207
  Serious: Yes (Other)
  Sender: FDA-Public Use
  Company Number: US-ROCHE-1845242

PATIENT
  Age: 39 Year
  Sex: Female

DRUGS (14)
  1. ESTRADIOL. [Concomitant]
     Active Substance: ESTRADIOL
     Route: 065
  2. GASTROCROM [Concomitant]
     Active Substance: CROMOLYN SODIUM
     Dosage: 100 MG/5 ML CONC, TAKE 2 TSPS PO TID
     Route: 048
  3. PEPCID (UNITED STATES) [Concomitant]
     Route: 048
  4. EPIPEN [Concomitant]
     Active Substance: EPINEPHRINE
     Indication: PHARYNGEAL OEDEMA
     Dosage: 2-PAK 0.3 MG AUTO-INJCT 0.3 MG/0.3 ML (1:1,000)
     Route: 065
  5. EPIPEN [Concomitant]
     Active Substance: EPINEPHRINE
     Indication: DIZZINESS
  6. XOLAIR [Suspect]
     Active Substance: OMALIZUMAB
     Indication: CHRONIC SPONTANEOUS URTICARIA
     Dosage: FIRST DOSE TODAY
     Route: 065
     Dates: start: 20161020
  7. PREDNISONE. [Concomitant]
     Active Substance: PREDNISONE
     Dosage: 30MG PO X3 D, THEN 20MG X 3 D, THEN 10MG X3 D
     Route: 048
  8. HYDROXYZINE HCL [Concomitant]
     Active Substance: HYDROXYZINE HYDROCHLORIDE
     Dosage: 1-4 PO QHS PRN
     Route: 048
  9. KETOTIFEN FUMARATE. [Concomitant]
     Active Substance: KETOTIFEN FUMARATE
     Dosage: 2MG/5ML ORAL SUSP; 1 TSP (5 ML) BY MOUTH DAILY
     Route: 065
  10. ZOFRAN [Concomitant]
     Active Substance: ONDANSETRON HYDROCHLORIDE
     Dosage: SUBLINGUAL TAB PRN Q 4-6 HOURS
     Route: 060
  11. BENADRYL [Concomitant]
     Active Substance: DIPHENHYDRAMINE HYDROCHLORIDE
     Dosage: 25MG LIQUI-GELS
     Route: 048
  12. CETIRIZINE HCL [Concomitant]
     Active Substance: CETIRIZINE HYDROCHLORIDE
     Route: 065
  13. ALLEGRA [Concomitant]
     Active Substance: FEXOFENADINE HYDROCHLORIDE
     Route: 065
  14. SINGULAIR [Concomitant]
     Active Substance: MONTELUKAST SODIUM
     Route: 065

REACTIONS (1)
  - Anaphylactic reaction [Unknown]

NARRATIVE: CASE EVENT DATE: 20161020
